FAERS Safety Report 16940771 (Version 2)
Quarter: 2019Q4

REPORT INFORMATION
  Report Type: Other
  Country: US (occurrence: US)
  Receive Date: 20191021
  Receipt Date: 20191031
  Transmission Date: 20200122
  Serious: Yes (Hospitalization, Other)
  Sender: FDA-Public Use
  Company Number: US-AMAG PHARMACEUTICALS, INC.-AMAG201905320

PATIENT
  Age: 34 Year
  Sex: Female

DRUGS (5)
  1. MAGNESIUM SULFATE. [Concomitant]
     Active Substance: MAGNESIUM SULFATE
     Indication: ADVERSE DRUG REACTION
  2. ANTIBIOTICS [Concomitant]
     Active Substance: UNSPECIFIED INGREDIENT
     Indication: CERVIX CERCLAGE PROCEDURE
  3. INDOMETHACIN. [Concomitant]
     Active Substance: INDOMETHACIN
     Indication: CERVIX CERCLAGE PROCEDURE
  4. BETAMETHASONE. [Concomitant]
     Active Substance: BETAMETHASONE
     Indication: ADVERSE DRUG REACTION
  5. MAKENA [Suspect]
     Active Substance: HYDROXYPROGESTERONE CAPROATE
     Indication: PREMATURE DELIVERY
     Route: 058
     Dates: start: 20190604, end: 20190819

REACTIONS (4)
  - Premature delivery [Recovered/Resolved]
  - Cervical incompetence [Recovered/Resolved]
  - Preterm premature rupture of membranes [Recovered/Resolved]
  - Pre-eclampsia [Recovered/Resolved]

NARRATIVE: CASE EVENT DATE: 20190825
